FAERS Safety Report 23475142 (Version 1)
Quarter: 2024Q1

REPORT INFORMATION
  Report Type: Report from Study
  Country: US (occurrence: US)
  Receive Date: 20240204
  Receipt Date: 20240204
  Transmission Date: 20240409
  Serious: No
  Sender: FDA-Public Use
  Company Number: US-EXELIXIS-CABO-22058464

PATIENT
  Age: 66 Year
  Sex: Male

DRUGS (10)
  1. CABOMETYX [Suspect]
     Active Substance: CABOZANTINIB S-MALATE
     Indication: Renal cancer
     Dosage: 40 MG, DAILY MON- FRI
     Route: 048
     Dates: start: 20210707
  2. CABOMETYX [Suspect]
     Active Substance: CABOZANTINIB S-MALATE
     Dosage: 40 MG, DAILY MON- FRI
     Route: 048
  3. XARELTO [Concomitant]
     Active Substance: RIVAROXABAN
     Dosage: UNK
  4. CLONAZEPAM [Concomitant]
     Active Substance: CLONAZEPAM
  5. EQUATE PAIN RELIEVER (ACETAMINOPHEN) [Concomitant]
     Active Substance: ACETAMINOPHEN
  6. LISINOPRIL [Concomitant]
     Active Substance: LISINOPRIL
  7. PEPTO-BISMOL [Concomitant]
     Active Substance: BISMUTH SUBSALICYLATE
  8. PROBIOTICS NOS [Concomitant]
     Active Substance: PROBIOTICS NOS
  9. NORCO [Concomitant]
     Active Substance: ACETAMINOPHEN\HYDROCODONE BITARTRATE
  10. MELOXICAM [Concomitant]
     Active Substance: MELOXICAM

REACTIONS (8)
  - Abdominal discomfort [Unknown]
  - Appetite disorder [Unknown]
  - Capillary fragility [Unknown]
  - Skin ulcer [Unknown]
  - Blood cholesterol increased [Unknown]
  - Dyspepsia [Unknown]
  - Diarrhoea [Unknown]
  - Inappropriate schedule of product administration [Unknown]

NARRATIVE: CASE EVENT DATE: 20210707
